FAERS Safety Report 8379574-4 (Version None)
Quarter: 2012Q2

REPORT INFORMATION
  Report Type: 
  Country: None (occurrence: None)
  Receive Date: 20120523
  Receipt Date: 20120515
  Transmission Date: 20120825
  Serious: Yes (Life-Threatening, Other)
  Sender: FDA-Public Use
  Company Number: US-JNJFOC-20120312630

PATIENT
  Sex: Male
  Weight: 140 kg

DRUGS (30)
  1. ABIRATERONE ACETATE [Suspect]
     Route: 048
  2. LANTUS [Concomitant]
     Indication: DIABETES MELLITUS
     Route: 058
     Dates: start: 20070801
  3. SIMCOR [Concomitant]
     Indication: HYPERLIPIDAEMIA
     Route: 048
     Dates: start: 20080801
  4. VANTAS [Concomitant]
     Route: 065
     Dates: start: 20090716
  5. CALCIUM AND VITAMIN D [Concomitant]
     Indication: MEDICAL DIET
     Route: 048
     Dates: start: 20120312
  6. CALTRATE +D [Concomitant]
     Indication: MEDICAL DIET
     Route: 048
     Dates: start: 20100128, end: 20111202
  7. IBUPROFEN (ADVIL) [Concomitant]
     Indication: BACK PAIN
     Route: 048
     Dates: start: 20110901, end: 20111202
  8. ABIRATERONE ACETATE [Suspect]
     Indication: PROSTATE CANCER METASTATIC
     Route: 048
     Dates: start: 20090716, end: 20120323
  9. PLAVIX [Concomitant]
     Indication: ARTERIOSCLEROSIS
     Route: 048
     Dates: start: 20000901
  10. SINGULAIR [Concomitant]
     Indication: MULTIPLE ALLERGIES
     Route: 048
     Dates: start: 20060401
  11. CALTRATE +D [Concomitant]
     Route: 048
     Dates: start: 20120312
  12. LASIX [Concomitant]
     Indication: OEDEMA PERIPHERAL
     Route: 048
     Dates: start: 20110501, end: 20111202
  13. CARTIA XT [Concomitant]
     Indication: HYPERTENSION
     Route: 048
     Dates: start: 20010701
  14. COREG [Concomitant]
     Indication: CORONARY ARTERY DISEASE
     Route: 048
     Dates: start: 20050901
  15. NOVOLOG [Concomitant]
     Dosage: EVERY MORNING
     Route: 058
     Dates: start: 20070801
  16. TORSEMIDE [Concomitant]
     Route: 048
     Dates: start: 20100128, end: 20100305
  17. ASPIRIN [Concomitant]
     Indication: CARDIOVASCULAR EVENT PROPHYLAXIS
     Route: 048
     Dates: start: 20000101
  18. NOVOLOG [Concomitant]
     Indication: DIABETES MELLITUS
     Dosage: EVERY EVENING
     Route: 058
     Dates: start: 20070801
  19. TORSEMIDE [Concomitant]
     Route: 048
     Dates: start: 20100305, end: 20101230
  20. TORSEMIDE [Concomitant]
     Route: 048
     Dates: start: 20101230, end: 20110811
  21. TRAMADOL HYDROCHLORIDE [Concomitant]
     Indication: CANCER PAIN
     Route: 048
     Dates: start: 20111121, end: 20111230
  22. PREDNISONE TAB [Suspect]
     Indication: PROSTATE CANCER METASTATIC
     Route: 048
     Dates: start: 20090716
  23. EPLERENONE [Concomitant]
     Indication: OEDEMA
     Route: 048
     Dates: start: 20111119
  24. AVAPRO [Concomitant]
     Indication: HYPERTENSION
     Route: 065
     Dates: start: 20020101, end: 20111230
  25. ALLOPURINOL [Concomitant]
     Indication: HYPERURICAEMIA
     Route: 065
     Dates: start: 20120301
  26. IBUPROFEN (ADVIL) [Concomitant]
     Indication: MUSCULOSKELETAL PAIN
     Route: 048
     Dates: start: 20110901, end: 20111202
  27. CLARINEX [Concomitant]
     Indication: MULTIPLE ALLERGIES
     Route: 048
     Dates: start: 20060401
  28. TETRACYCLINE [Concomitant]
     Indication: ROSACEA
     Route: 048
     Dates: start: 19970131
  29. VANTAS [Concomitant]
     Indication: CANCER HORMONAL THERAPY
     Route: 065
     Dates: start: 20061001
  30. TORSEMIDE [Concomitant]
     Indication: HYPERTENSION
     Route: 048
     Dates: start: 20110811

REACTIONS (2)
  - BLOOD URIC ACID INCREASED [None]
  - HYPERURICAEMIA [None]
